FAERS Safety Report 16811229 (Version 1)
Quarter: 2019Q3

REPORT INFORMATION
  Report Type: Report from Study
  Country: PH (occurrence: PH)
  Receive Date: 20190916
  Receipt Date: 20190916
  Transmission Date: 20191005
  Serious: Yes (Life-Threatening)
  Sender: FDA-Public Use
  Company Number: PH-OTSUKA-2019_032151

PATIENT
  Age: 68 Year
  Sex: Male

DRUGS (4)
  1. GLUCOPHAGE [Suspect]
     Active Substance: METFORMIN HYDROCHLORIDE
     Indication: DIABETES MELLITUS
     Dosage: 500 MG, UNK
     Route: 065
  2. ARIPIPRAZOLE. [Suspect]
     Active Substance: ARIPIPRAZOLE
     Indication: BIPOLAR DISORDER
     Dosage: 10 MG, QD
     Route: 048
     Dates: start: 201701
  3. ARIPIPRAZOLE. [Suspect]
     Active Substance: ARIPIPRAZOLE
     Indication: SCHIZOPHRENIA
  4. CONZACE [Suspect]
     Active Substance: .ALPHA.-TOCOPHEROL ACETATE, DL-\ASCORBIC ACID\VITAMIN A PALMITATE\ZINC SULFATE
     Indication: VITAMIN SUPPLEMENTATION
     Dosage: UNK UNK, QM
     Route: 065

REACTIONS (4)
  - Asthma [Recovered/Resolved with Sequelae]
  - Chest discomfort [Recovered/Resolved with Sequelae]
  - Abnormal sleep-related event [Recovered/Resolved with Sequelae]
  - Tremor [Recovered/Resolved with Sequelae]

NARRATIVE: CASE EVENT DATE: 201903
